FAERS Safety Report 4428148-6 (Version None)
Quarter: 2004Q3

REPORT INFORMATION
  Report Type: 
  Country: None (occurrence: None)
  Receive Date: 20040726
  Receipt Date: 20040311
  Transmission Date: 20050211
  Serious: No
  Sender: FDA-Public Use
  Company Number: USA030537332

PATIENT
  Age: 68 Year
  Sex: Female
  Weight: 53 kg

DRUGS (6)
  1. FORTEO [Suspect]
     Indication: OSTEOPOROSIS
     Dosage: 20 UG/1 DAY
     Dates: start: 20030201
  2. CALCIUM WITH VITAMIN D [Concomitant]
  3. GLUCOSAMINE CHONDROITIN [Concomitant]
  4. MSM (MSM) [Concomitant]
  5. METHIMAZOLE [Concomitant]
  6. VIOXX [Concomitant]

REACTIONS (3)
  - KYPHOSIS [None]
  - MUSCLE CRAMP [None]
  - PAIN IN EXTREMITY [None]
